APPROVED DRUG PRODUCT: E-Z SCRUB 201
Active Ingredient: POVIDONE-IODINE
Strength: 20%
Dosage Form/Route: SPONGE;TOPICAL
Application: N019240 | Product #001
Applicant: BECTON DICKINSON AND CO
Approved: Nov 29, 1985 | RLD: Yes | RS: No | Type: DISCN